FAERS Safety Report 23779897 (Version 3)
Quarter: 2024Q2

REPORT INFORMATION
  Report Type: Spontaneous
  Country: US (occurrence: US)
  Receive Date: 20240424
  Receipt Date: 20240619
  Transmission Date: 20240716
  Serious: Yes (Other)
  Sender: FDA-Public Use
  Company Number: US-PFIZER INC-202400093752

PATIENT
  Age: 7 Month
  Sex: Male
  Weight: 7.71 kg

DRUGS (4)
  1. EUCRISA [Suspect]
     Active Substance: CRISABOROLE
     Indication: Eczema
     Dosage: UNK, 2X/DAY (TO FACE)
     Route: 061
     Dates: start: 20240418, end: 202404
  2. EUCRISA [Suspect]
     Active Substance: CRISABOROLE
     Dosage: UNK, 1X/DAY (ONE TIME)
     Route: 061
     Dates: start: 202404, end: 202404
  3. EUCRISA [Suspect]
     Active Substance: CRISABOROLE
     Dosage: UNK, 2X/DAY (TO FACE)
     Route: 061
     Dates: start: 202404
  4. VASELIN [Concomitant]
     Dosage: UNK

REACTIONS (2)
  - Screaming [Not Recovered/Not Resolved]
  - Pain [Not Recovered/Not Resolved]

NARRATIVE: CASE EVENT DATE: 20240418
